FAERS Safety Report 9423742 (Version 1)
Quarter: 2013Q3

REPORT INFORMATION
  Report Type: Spontaneous
  Country: US (occurrence: US)
  Receive Date: 20130728
  Receipt Date: 20130728
  Transmission Date: 20140515
  Serious: Yes (Disabling)
  Sender: FDA-Public Use
  Company Number: PHEH2013US015748

PATIENT
  Sex: Male

DRUGS (4)
  1. MYFORTIC [Suspect]
     Dosage: 720 MG, BID
     Route: 048
     Dates: start: 200305
  2. EXFORGE [Concomitant]
  3. PREDNISONE [Concomitant]
  4. CYCLOSPORINE [Concomitant]

REACTIONS (1)
  - Spinal column injury [Unknown]
